FAERS Safety Report 8259406-5 (Version None)
Quarter: 2012Q2

REPORT INFORMATION
  Report Type: 
  Country: None (occurrence: None)
  Receive Date: 20120404
  Receipt Date: 20120328
  Transmission Date: 20120825
  Serious: Yes (Other)
  Sender: FDA-Public Use
  Company Number: US-JNJFOC-20120400755

PATIENT
  Age: 53 Year
  Sex: Male

DRUGS (28)
  1. DOXORUBICIN HCL [Suspect]
     Indication: RENAL CELL CARCINOMA
     Dosage: CYCLE 8
     Route: 042
  2. GEMCITABINE [Suspect]
     Indication: RENAL CELL CARCINOMA
     Dosage: CYCLE 4
     Route: 065
  3. GEMCITABINE [Suspect]
     Dosage: CYCLE 6
     Route: 065
  4. GEMCITABINE [Suspect]
     Dosage: CYCLE 8
     Route: 065
  5. GEMCITABINE [Suspect]
     Dosage: CYCLE 10
     Route: 065
  6. ALL OTHER THERAPEUTIC PRODUCTS [Concomitant]
     Dosage: CYCLE 2
     Route: 065
  7. ALL OTHER THERAPEUTIC PRODUCTS [Concomitant]
     Dosage: CYCLE 3
     Route: 065
  8. ALL OTHER THERAPEUTIC PRODUCTS [Concomitant]
     Dosage: CYCLE 8
     Route: 065
  9. GEMCITABINE [Suspect]
     Dosage: CYCLE 5
     Route: 065
  10. ALL OTHER THERAPEUTIC PRODUCTS [Concomitant]
     Dosage: CYCLE 7
     Route: 065
  11. DOXORUBICIN HCL [Suspect]
     Dosage: CYCLE 5
     Route: 042
  12. DOXORUBICIN HCL [Suspect]
     Dosage: CYCLE 4
     Route: 042
  13. GEMCITABINE [Suspect]
     Dosage: CYCLE 3
     Route: 065
  14. GEMCITABINE [Suspect]
     Dosage: CYCLE 1
     Route: 065
  15. GEMCITABINE [Suspect]
     Dosage: CYCLE 9
     Route: 065
  16. ALL OTHER THERAPEUTIC PRODUCTS [Concomitant]
     Dosage: CYCLE 4
     Route: 065
  17. DOXORUBICIN HCL [Suspect]
     Dosage: CYCLE 2
     Route: 042
  18. ALL OTHER THERAPEUTIC PRODUCTS [Concomitant]
     Dosage: CYCLE 6
     Route: 065
  19. DOXORUBICIN HCL [Suspect]
     Dosage: CYCLE 1
     Route: 042
  20. GEMCITABINE [Suspect]
     Dosage: CYCLE 2
     Route: 065
  21. ALL OTHER THERAPEUTIC PRODUCTS [Concomitant]
     Dosage: CYCLE 1
     Route: 065
  22. DOXORUBICIN HCL [Suspect]
     Dosage: CYCLE 6
     Route: 042
  23. DOXORUBICIN HCL [Suspect]
     Dosage: CYCLE 3
     Route: 042
  24. GEMCITABINE [Suspect]
     Dosage: CYCLE 12
     Route: 065
  25. GEMCITABINE [Suspect]
     Dosage: CYCLE 11
     Route: 065
  26. DOXORUBICIN HCL [Suspect]
     Dosage: CYCLE 7
     Route: 042
  27. GEMCITABINE [Suspect]
     Dosage: CYCLE 7
     Route: 065
  28. ALL OTHER THERAPEUTIC PRODUCTS [Concomitant]
     Dosage: CYCLE 5
     Route: 065

REACTIONS (2)
  - COLITIS ISCHAEMIC [None]
  - DIVERTICULITIS [None]
